FAERS Safety Report 5568369-2 (Version None)
Quarter: 2007Q4

REPORT INFORMATION
  Report Type: 
  Country: None (occurrence: None)
  Receive Date: 20071217
  Receipt Date: 20071203
  Transmission Date: 20080405
  Serious: Yes (Hospitalization, Other)
  Sender: FDA-Public Use
  Company Number: 230924J07USA

PATIENT
  Age: 73 Year
  Sex: Male

DRUGS (1)
  1. REBIF [Suspect]
     Indication: MULTIPLE SCLEROSIS
     Dosage: 44 MCG, 3 IN 1 WEEKS, SUBCUTANEOUS
     Route: 058
     Dates: start: 20070601

REACTIONS (4)
  - BLADDER DISORDER [None]
  - GASTROINTESTINAL DISORDER [None]
  - IMMOBILE [None]
  - INFECTED SKIN ULCER [None]
